FAERS Safety Report 6012386-5 (Version None)
Quarter: 2008Q4

REPORT INFORMATION
  Report Type: 
  Country: None (occurrence: None)
  Receive Date: 20081218
  Receipt Date: 20081025
  Transmission Date: 20090506
  Serious: No
  Sender: FDA-Public Use
  Company Number: CA-ASTRAZENECA-2008UW21032

PATIENT
  Sex: Male

DRUGS (3)
  1. SYMBICORT [Suspect]
     Indication: CHRONIC OBSTRUCTIVE PULMONARY DISEASE
     Dosage: 4 PUFFS DAILY
     Route: 055
  2. SPIRIVA [Concomitant]
     Route: 055
  3. PREDNISONE TAB [Concomitant]
     Route: 048

REACTIONS (2)
  - DRUG INEFFECTIVE [None]
  - GAIT DISTURBANCE [None]
